FAERS Safety Report 4909007-9 (Version None)
Quarter: 2006Q1

REPORT INFORMATION
  Report Type: 
  Country: None (occurrence: None)
  Receive Date: 20060213
  Receipt Date: 20051207
  Transmission Date: 20060701
  Serious: Yes (Life-Threatening, Hospitalization)
  Sender: FDA-Public Use
  Company Number: JP-BOEHRINGER INGELHEIM PHARMACEUTICALS, INC.-2005-BP-21073NB

PATIENT
  Sex: Male
  Weight: 51 kg

DRUGS (14)
  1. MEXITIL [Suspect]
     Indication: ARRHYTHMIA
     Route: 048
     Dates: start: 20050715, end: 20050806
  2. DISOPYRAMIDE [Suspect]
     Indication: ARRHYTHMIA
     Route: 048
     Dates: start: 20050715, end: 20050806
  3. RENAGEL [Concomitant]
     Indication: RENAL FAILURE
     Route: 048
     Dates: start: 20040623
  4. SELBEX [Concomitant]
     Indication: GASTRITIS
     Route: 048
     Dates: start: 20041013
  5. KALIMATE [Concomitant]
     Indication: RENAL FAILURE
     Route: 048
     Dates: start: 20050310
  6. TAVEGYL (CLEMASTINE FUMARATE) [Concomitant]
     Indication: PRURITUS
     Route: 048
     Dates: start: 20050310
  7. ASPIRIN [Concomitant]
     Indication: MYOCARDIAL INFARCTION
     Route: 048
     Dates: start: 20030325
  8. TICLOPIDINE HCL [Concomitant]
     Indication: MYOCARDIAL INFARCTION
     Route: 048
     Dates: start: 20030325
  9. ISOSORBIDE MONONITRATE [Concomitant]
     Indication: ANGINA PECTORIS
     Route: 048
     Dates: start: 20030325, end: 20060206
  10. DEPAS [Concomitant]
     Indication: DEPRESSION
     Route: 048
     Dates: start: 20040623
  11. DIGOSIN [Concomitant]
     Indication: MYOCARDIAL INFARCTION
     Route: 048
     Dates: start: 20051207
  12. ZYLORIC [Concomitant]
     Indication: GOUT
     Route: 048
     Dates: start: 20030714
  13. PARIET [Concomitant]
     Indication: GASTRIC ULCER
     Route: 048
     Dates: start: 20050310
  14. LAXOBERON [Concomitant]
     Indication: CONSTIPATION
     Route: 048
     Dates: start: 20050310

REACTIONS (2)
  - DRUG HYPERSENSITIVITY [None]
  - SKIN TEST POSITIVE [None]
